FAERS Safety Report 6427684-0 (Version None)
Quarter: 2009Q4

REPORT INFORMATION
  Report Type: 
  Country: None (occurrence: None)
  Receive Date: 20091105
  Receipt Date: 20091029
  Transmission Date: 20100525
  Serious: Yes (Other)
  Sender: FDA-Public Use
  Company Number: US-BIOGENIDEC-2009BI010743

PATIENT
  Age: 39 Year
  Sex: Female
  Weight: 41 kg

DRUGS (2)
  1. TYSABRI [Suspect]
     Indication: MULTIPLE SCLEROSIS
     Route: 042
     Dates: start: 20041201, end: 20050228
  2. TYSABRI [Suspect]
     Route: 042
     Dates: start: 20060718

REACTIONS (3)
  - CONVULSION [None]
  - HYPERSOMNIA [None]
  - MULTIPLE SCLEROSIS [None]
